FAERS Safety Report 4891583-6 (Version None)
Quarter: 2005Q4

REPORT INFORMATION
  Report Type: 
  Country: None (occurrence: None)
  Receive Date: 20051220
  Receipt Date: 20051011
  Transmission Date: 20060501
  Serious: Yes (Other)
  Sender: FDA-Public Use
  Company Number: 421166

PATIENT
  Age: 52 Year
  Sex: Female
  Weight: 48.1 kg

DRUGS (4)
  1. BONIVA [Suspect]
     Indication: OSTEOPOROSIS
     Dosage: 150 MG 1 PER MONTH, ORAL
     Route: 048
     Dates: start: 20050915
  2. HORMONE REPLACEMENT THERAPY (HORMONE REPLACEMENT THERAPY) [Concomitant]
  3. CALCIUM (CALCIUIM) [Concomitant]
  4. PEPCID [Concomitant]

REACTIONS (1)
  - GASTRITIS [None]
